FAERS Safety Report 23866295 (Version 4)
Quarter: 2025Q1

REPORT INFORMATION
  Report Type: Spontaneous
  Country: US (occurrence: US)
  Receive Date: 20240517
  Receipt Date: 20250218
  Transmission Date: 20250408
  Serious: No
  Sender: NOVARTIS
  Company Number: US-002147023-NVSC2024US103972

PATIENT
  Sex: Female

DRUGS (1)
  1. MEKINIST [Suspect]
     Active Substance: TRAMETINIB DIMETHYL SULFOXIDE
     Indication: Ovarian cancer
     Dosage: 1.5 MG, QD
     Route: 048
     Dates: start: 202401

REACTIONS (10)
  - Nausea [Unknown]
  - Diarrhoea [Unknown]
  - Vomiting [Unknown]
  - Fatigue [Unknown]
  - Tremor [Recovered/Resolved]
  - Nail disorder [Unknown]
  - Pain [Unknown]
  - Lymphoedema [Unknown]
  - Product dose omission issue [Unknown]
  - Off label use [Unknown]
